FAERS Safety Report 5513101-1 (Version None)
Quarter: 2007Q4

REPORT INFORMATION
  Report Type: 
  Country: None (occurrence: None)
  Receive Date: 20071112
  Receipt Date: 20071105
  Transmission Date: 20080405
  Serious: Yes (Hospitalization, Other)
  Sender: FDA-Public Use
  Company Number: GB-JNJFOC-20040603158

PATIENT
  Sex: Female
  Weight: 76 kg

DRUGS (7)
  1. REMICADE [Suspect]
     Indication: RHEUMATOID ARTHRITIS
     Route: 042
  2. METHOTREXATE [Concomitant]
  3. FOLIC ACID [Concomitant]
  4. FERROUS SULFATE TAB [Concomitant]
  5. CELECOXIB [Concomitant]
  6. PREDNISOLONE [Concomitant]
  7. TRAMADOL HCL [Concomitant]

REACTIONS (3)
  - ARTHRALGIA [None]
  - MALAISE [None]
  - PYREXIA [None]
